FAERS Safety Report 11672353 (Version 3)
Quarter: 2015Q4

REPORT INFORMATION
  Report Type: Report from Study
  Country: DE (occurrence: DE)
  Receive Date: 20151028
  Receipt Date: 20151110
  Transmission Date: 20160304
  Serious: Yes (Life-Threatening, Hospitalization, Disabling, Other)
  Sender: FDA-Public Use
  Company Number: DE-BEH-2015054401

PATIENT
  Age: 55 Year
  Sex: Male
  Weight: 68 kg

DRUGS (15)
  1. PRIVIGEN [Suspect]
     Active Substance: HUMAN IMMUNOGLOBULIN G
  2. PRIVIGEN [Suspect]
     Active Substance: HUMAN IMMUNOGLOBULIN G
  3. PRIVIGEN [Suspect]
     Active Substance: HUMAN IMMUNOGLOBULIN G
  4. PYRIDOSTIGMIN [Concomitant]
  5. PREGABALIN. [Concomitant]
     Active Substance: PREGABALIN
  6. PRIVIGEN [Suspect]
     Active Substance: HUMAN IMMUNOGLOBULIN G
  7. PRIVIGEN [Suspect]
     Active Substance: HUMAN IMMUNOGLOBULIN G
     Dosage: INFUSION RATE MIN. 5ML/H - MAX 8ML/H
     Route: 042
     Dates: start: 20150911, end: 20150911
  8. PRIVIGEN [Suspect]
     Active Substance: HUMAN IMMUNOGLOBULIN G
     Dosage: INFUSION RATE MIN. 5ML/H - MAX 8ML/H
     Route: 042
     Dates: start: 20150912, end: 20150912
  9. RAMIPRIL. [Concomitant]
     Active Substance: RAMIPRIL
     Indication: HYPERTENSION
     Dosage: START DATE 01-JAN-????
     Route: 048
  10. PRIVIGEN [Suspect]
     Active Substance: HUMAN IMMUNOGLOBULIN G
     Dosage: INFUSION RATE MIN. 5ML/H - MAX 8ML/H
     Route: 042
     Dates: start: 20150910, end: 20150910
  11. GLUCOCORTICOIDS [Concomitant]
     Active Substance: UNSPECIFIED INGREDIENT
  12. ZANTAC [Concomitant]
     Active Substance: RANITIDINE HYDROCHLORIDE
     Indication: CHRONIC INFLAMMATORY DEMYELINATING POLYRADICULONEUROPATHY
     Route: 048
     Dates: start: 20130101
  13. PREDNISON [Concomitant]
     Active Substance: PREDNISONE
     Indication: CHRONIC INFLAMMATORY DEMYELINATING POLYRADICULONEUROPATHY
     Route: 048
     Dates: start: 20130101
  14. PRIVIGEN [Suspect]
     Active Substance: HUMAN IMMUNOGLOBULIN G
     Indication: CHRONIC INFLAMMATORY DEMYELINATING POLYRADICULONEUROPATHY
     Dosage: INFUSION RATE MIN. 5ML/H - MAX 8ML/H
     Route: 042
     Dates: start: 20150909, end: 20150909
  15. PRIVIGEN [Suspect]
     Active Substance: HUMAN IMMUNOGLOBULIN G
     Dosage: INFUSION RATE MIN. 5ML/H - MAX 8ML/H
     Route: 042
     Dates: start: 20150913, end: 20150913

REACTIONS (4)
  - Nephrotic syndrome [Not Recovered/Not Resolved]
  - Glomerulonephritis membranous [Not Recovered/Not Resolved]
  - Acute kidney injury [Not Recovered/Not Resolved]
  - Anaemia macrocytic [Not Recovered/Not Resolved]

NARRATIVE: CASE EVENT DATE: 201509
